FAERS Safety Report 5746605-7 (Version None)
Quarter: 2008Q2

REPORT INFORMATION
  Report Type: 
  Country: None (occurrence: None)
  Receive Date: 20080520
  Receipt Date: 20080509
  Transmission Date: 20081010
  Serious: Yes (Other)
  Sender: FDA-Public Use
  Company Number: GXKR2008IT04311

PATIENT
  Age: 65 Year
  Sex: Female

DRUGS (4)
  1. MYCOPHENOLATE MOFETIL [Suspect]
     Indication: IMMUNOSUPPRESSION
     Dosage: TAPERING OFF FOR 3 MONTHS
  2. METHYLPREDNISOLONE [Suspect]
     Indication: IMMUNOSUPPRESSION
     Dosage: 1G, ONCE/SINGLE,
  3. LAMIVUDINE [Concomitant]
  4. IMMUNOGLOBULINS (IMMUNOGLOBULINS) [Concomitant]

REACTIONS (4)
  - HUMAN HERPESVIRUS 8 INFECTION [None]
  - IMMUNE SYSTEM DISORDER [None]
  - KAPOSI'S SARCOMA [None]
  - SKIN LESION EXCISION [None]
